FAERS Safety Report 17725593 (Version 1)
Quarter: 2020Q2

REPORT INFORMATION
  Report Type: Spontaneous
  Country: US (occurrence: US)
  Receive Date: 20200429
  Receipt Date: 20200429
  Transmission Date: 20200714
  Serious: No
  Sender: FDA-Public Use
  Company Number: US-BRECKENRIDGE PHARMACEUTICAL, INC.-2083324

PATIENT
  Age: 79 Year
  Sex: Female
  Weight: 60.46 kg

DRUGS (6)
  1. ATENOLOL. [Concomitant]
     Active Substance: ATENOLOL
  2. LOSARTAN. [Concomitant]
     Active Substance: LOSARTAN
  3. DULOXETINE. [Suspect]
     Active Substance: DULOXETINE
     Indication: HERPES ZOSTER
     Route: 048
  4. THYROID MEDICATION [Concomitant]
     Active Substance: UNSPECIFIED INGREDIENT
  5. HYDRALAZINE [Concomitant]
     Active Substance: HYDRALAZINE HYDROCHLORIDE
  6. CLONAZEPAM. [Concomitant]
     Active Substance: CLONAZEPAM

REACTIONS (4)
  - Fatigue [None]
  - Ocular hyperaemia [None]
  - Blister [None]
  - Nausea [None]
